FAERS Safety Report 24071293 (Version 1)
Quarter: 2024Q3

REPORT INFORMATION
  Report Type: Report from Study
  Country: CL (occurrence: CL)
  Receive Date: 20240710
  Receipt Date: 20240710
  Transmission Date: 20241016
  Serious: No
  Sender: ROCHE
  Company Number: CL-ROCHE-3516965

PATIENT
  Sex: Male
  Weight: 62.0 kg

DRUGS (2)
  1. EVRYSDI [Suspect]
     Active Substance: RISDIPLAM
     Indication: Spinal muscular atrophy
     Dosage: 60MG/80ML
     Route: 065
     Dates: start: 202306
  2. CLONAZEPAM [Concomitant]
     Active Substance: CLONAZEPAM
     Dates: start: 2022

REACTIONS (2)
  - Pain [Not Recovered/Not Resolved]
  - Anaemia [Not Recovered/Not Resolved]

NARRATIVE: CASE EVENT DATE: 20231201
